APPROVED DRUG PRODUCT: ACITRETIN
Active Ingredient: ACITRETIN
Strength: 10MG
Dosage Form/Route: CAPSULE;ORAL
Application: A202148 | Product #001 | TE Code: AB
Applicant: MYLAN PHARMACEUTICALS INC
Approved: Sep 10, 2015 | RLD: No | RS: No | Type: RX